FAERS Safety Report 8403480-X (Version None)
Quarter: 2012Q2

REPORT INFORMATION
  Report Type: 
  Country: None (occurrence: None)
  Receive Date: 20120323
  Receipt Date: 20110429
  Transmission Date: 20120825
  Serious: Yes (Hospitalization)
  Sender: FDA-Public Use
  Company Number: 163-21880-11050064

PATIENT
  Age: 80 Year
  Sex: Female
  Weight: 56.246 kg

DRUGS (18)
  1. LEVOTHYROID (LEVOTHYROXINE) [Concomitant]
  2. NITROSTAT [Concomitant]
  3. EPIPEN [Concomitant]
  4. METROGEL [Concomitant]
  5. PREDNISONE TAB [Concomitant]
  6. MAGNESIUM OXIDE (MAGNESIUM OXIDE) [Concomitant]
  7. VITAMIN B12 [Concomitant]
  8. OSCAL WITH VITAMIN D (OS-CAL) [Concomitant]
  9. VICODIN [Concomitant]
  10. REVLIMID [Suspect]
     Indication: MULTIPLE MYELOMA
     Dosage: 25 MG, 1 IN 1 D, PO 15 MG, 1 IN 1 D, PO 10 MG, DAILY X 18 DAYS, PO
     Route: 048
     Dates: start: 20091101
  11. REVLIMID [Suspect]
     Indication: MULTIPLE MYELOMA
     Dosage: 25 MG, 1 IN 1 D, PO 15 MG, 1 IN 1 D, PO 10 MG, DAILY X 18 DAYS, PO
     Route: 048
     Dates: start: 20090501
  12. REVLIMID [Suspect]
     Indication: MULTIPLE MYELOMA
     Dosage: 25 MG, 1 IN 1 D, PO 15 MG, 1 IN 1 D, PO 10 MG, DAILY X 18 DAYS, PO
     Route: 048
     Dates: start: 20090801
  13. AMBIEN [Concomitant]
  14. DOXYCYCLINE [Concomitant]
  15. ESTRACE [Concomitant]
  16. LAC-HYDRIN (AMMONIUM LACTATE) [Concomitant]
  17. ASCORBIC ACID [Concomitant]
  18. LOMOTIL [Concomitant]

REACTIONS (1)
  - INFECTION [None]
